FAERS Safety Report 20189352 (Version 1)
Quarter: 2021Q4

REPORT INFORMATION
  Report Type: Report from Study
  Country: PL (occurrence: PL)
  Receive Date: 20211215
  Receipt Date: 20211215
  Transmission Date: 20220303
  Serious: Yes (Death, Life-Threatening, Hospitalization)
  Sender: FDA-Public Use
  Company Number: PL-JNJFOC-20211117989

PATIENT
  Age: 75 Year
  Sex: Male
  Weight: 58.5 kg

DRUGS (8)
  1. IBRUTINIB [Suspect]
     Active Substance: IBRUTINIB
     Indication: Chronic lymphocytic leukaemia
     Route: 048
     Dates: start: 20211013, end: 20211104
  2. JNJ-67856633 [Concomitant]
     Indication: Chronic lymphocytic leukaemia
     Route: 048
     Dates: start: 20211013, end: 20211104
  3. ESOMEPRAZOLE MAGNESIUM [Concomitant]
     Active Substance: ESOMEPRAZOLE MAGNESIUM
     Indication: Prophylaxis against gastrointestinal ulcer
     Dosage: START //2021
  4. HASCOVIR [Concomitant]
     Indication: Antiviral prophylaxis
     Dates: start: 2017
  5. TAMSULOSIN [Concomitant]
     Active Substance: TAMSULOSIN
     Indication: Benign prostatic hyperplasia
     Dates: start: 20210825
  6. ALLOPURINOL [Concomitant]
     Active Substance: ALLOPURINOL
     Indication: Prophylaxis
     Dates: start: 20211013, end: 20211020
  7. ALLOPURINOL [Concomitant]
     Active Substance: ALLOPURINOL
     Dates: start: 20211021
  8. FUROSEMIDE [Concomitant]
     Active Substance: FUROSEMIDE
     Indication: Tumour lysis syndrome
     Dates: start: 20211020

REACTIONS (2)
  - Cerebral haemorrhage [Fatal]
  - Pneumonia [Not Recovered/Not Resolved]

NARRATIVE: CASE EVENT DATE: 20211102
